FAERS Safety Report 4378938-3 (Version None)
Quarter: 2004Q2

REPORT INFORMATION
  Report Type: 
  Country: None (occurrence: None)
  Receive Date: 20040610
  Receipt Date: 20040603
  Transmission Date: 20050107
  Serious: Yes (Death)
  Sender: FDA-Public Use
  Company Number: RS004511-J

PATIENT
  Age: 75 Year
  Sex: Male

DRUGS (3)
  1. RABEPRAZOLE SODIUM [Suspect]
     Indication: ABDOMINAL PAIN UPPER
     Dosage: ORAL
     Route: 048
     Dates: start: 20040512
  2. AMARYL [Concomitant]
  3. AGENTS FOR HYPERLIPIDEMIAS [Concomitant]

REACTIONS (7)
  - ANURIA [None]
  - CARDIAC TAMPONADE [None]
  - CHOKING [None]
  - HEPATIC ENCEPHALOPATHY [None]
  - HEPATITIS FULMINANT [None]
  - SOMNOLENCE [None]
  - WHITE BLOOD CELL COUNT INCREASED [None]
